FAERS Safety Report 8349541-5 (Version None)
Quarter: 2012Q2

REPORT INFORMATION
  Report Type: 
  Country: None (occurrence: None)
  Receive Date: 20120508
  Receipt Date: 20120508
  Transmission Date: 20120825
  Serious: Yes (Hospitalization)
  Sender: FDA-Public Use
  Company Number: None

PATIENT
  Sex: Male
  Weight: 65.9 kg

DRUGS (5)
  1. PREDNISONE [Suspect]
     Dosage: 375 MG
  2. VINCRISTINE SULFATE [Suspect]
     Dosage: 2 MG
  3. RITUXIMAB (MOAB C2B8 ANTI CD20, CHIMERIC) [Suspect]
     Dosage: 641.7 MG
  4. CYCLOPHOSPHAMIDE [Suspect]
  5. DOXORUBICIN HYDROCHLORIDE [Suspect]
     Dosage: 95 MG

REACTIONS (7)
  - DIZZINESS [None]
  - HYPOTENSION [None]
  - VISION BLURRED [None]
  - FATIGUE [None]
  - EJECTION FRACTION DECREASED [None]
  - DIASTOLIC DYSFUNCTION [None]
  - LUNG DISORDER [None]
